FAERS Safety Report 5756902-7 (Version None)
Quarter: 2008Q2

REPORT INFORMATION
  Report Type: 
  Country: None (occurrence: None)
  Receive Date: 20080529
  Receipt Date: 20080520
  Transmission Date: 20081010
  Serious: Yes (Death)
  Sender: FDA-Public Use
  Company Number: 163-21880-08040811

PATIENT
  Age: 86 Year
  Sex: Male

DRUGS (3)
  1. REVLIMID [Suspect]
     Indication: LEUKAEMIA MONOCYTIC
     Dosage: 10 MG, 1 IN 1 D, ORAL; 5 MG, 1 IN 1 D, ORAL
     Route: 048
     Dates: start: 20070426, end: 20070101
  2. REVLIMID [Suspect]
     Indication: LEUKAEMIA MONOCYTIC
     Dosage: 10 MG, 1 IN 1 D, ORAL; 5 MG, 1 IN 1 D, ORAL
     Route: 048
     Dates: start: 20070212, end: 20070301
  3. REVLIMID [Suspect]
     Indication: LEUKAEMIA MONOCYTIC
     Dosage: 10 MG, 1 IN 1 D, ORAL; 5 MG, 1 IN 1 D, ORAL
     Route: 048
     Dates: start: 20070329, end: 20070401

REACTIONS (2)
  - DISEASE PROGRESSION [None]
  - LEUKAEMIA MONOCYTIC [None]
